FAERS Safety Report 5833275-2 (Version None)
Quarter: 2008Q3

REPORT INFORMATION
  Report Type: 
  Country: None (occurrence: None)
  Receive Date: 20080804
  Receipt Date: 20080804
  Transmission Date: 20090109
  Serious: Yes (Other)
  Sender: FDA-Public Use
  Company Number: None

PATIENT
  Sex: Female
  Weight: 60.3284 kg

DRUGS (1)
  1. KARIVA [Suspect]
     Dosage: 1 TAB PO DAILY
     Route: 048

REACTIONS (6)
  - ABDOMINAL DISTENSION [None]
  - CONDITION AGGRAVATED [None]
  - DIARRHOEA [None]
  - MUSCLE SPASMS [None]
  - PHARMACEUTICAL PRODUCT COMPLAINT [None]
  - PREMENSTRUAL SYNDROME [None]
